FAERS Safety Report 13735077 (Version 1)
Quarter: 2017Q3

REPORT INFORMATION
  Report Type: Spontaneous
  Country: US (occurrence: US)
  Receive Date: 20170710
  Receipt Date: 20170710
  Transmission Date: 20171127
  Serious: No
  Sender: FDA-Public Use
  Company Number: US-THE MEDICINES COMPANY-US-MDCO-16-00544

PATIENT
  Sex: Male

DRUGS (1)
  1. IONSYS [Suspect]
     Active Substance: FENTANYL HYDROCHLORIDE
     Indication: PRODUCT USED FOR UNKNOWN INDICATION
     Dosage: NOT REPORTED
     Dates: start: 20161212, end: 20161213

REACTIONS (5)
  - Application site irritation [None]
  - Application site erythema [None]
  - Application site pain [None]
  - Application site rash [Recovering/Resolving]
  - Skin burning sensation [Recovering/Resolving]
